FAERS Safety Report 6909162-5 (Version None)
Quarter: 2010Q3

REPORT INFORMATION
  Report Type: 
  Country: None (occurrence: None)
  Receive Date: 20100805
  Receipt Date: 20100727
  Transmission Date: 20110219
  Serious: Yes (Other)
  Sender: FDA-Public Use
  Company Number: US-JNJFOC-20100708752

PATIENT
  Sex: Male
  Weight: 108.86 kg

DRUGS (3)
  1. INVEGA [Suspect]
     Indication: SCHIZOAFFECTIVE DISORDER
     Route: 048
  2. INVEGA [Suspect]
     Indication: BIPOLAR DISORDER
     Route: 048
  3. DEPAKOTE [Concomitant]

REACTIONS (7)
  - BLOOD PROLACTIN INCREASED [None]
  - BLOOD TESTOSTERONE DECREASED [None]
  - GLUCOSE TOLERANCE IMPAIRED [None]
  - GYNAECOMASTIA [None]
  - HALLUCINATION, AUDITORY [None]
  - PROSTATOMEGALY [None]
  - SOMNAMBULISM [None]
